FAERS Safety Report 6772700-X (Version None)
Quarter: 2010Q2

REPORT INFORMATION
  Report Type: 
  Country: None (occurrence: None)
  Receive Date: 20100616
  Receipt Date: 20090814
  Transmission Date: 20101027
  Serious: No
  Sender: FDA-Public Use
  Company Number: US-ASTRAZENECA-2009SE08252

PATIENT
  Age: 29992 Day
  Sex: Female

DRUGS (4)
  1. PULMICORT RESPULES [Suspect]
     Indication: PULMONARY FIBROSIS
     Route: 055
     Dates: start: 20090722
  2. CELEBREX [Concomitant]
  3. POTASSIUM [Concomitant]
  4. LASIX [Concomitant]

REACTIONS (2)
  - DRUG INEFFECTIVE [None]
  - DYSPNOEA [None]
